FAERS Safety Report 10521698 (Version 3)
Quarter: 2014Q4

REPORT INFORMATION
  Report Type: Spontaneous
  Country: US (occurrence: None)
  Receive Date: 20141014
  Receipt Date: 20141027
  Transmission Date: 20150528
  Serious: Yes (Hospitalization, Other)
  Sender: FDA-Public Use
  Company Number: 2014IHE00443

PATIENT
  Age: 52 Year
  Sex: Female
  Weight: 62.6 kg

DRUGS (5)
  1. AZO [Suspect]
     Active Substance: PHENAZOPYRIDINE HYDROCHLORIDE
     Indication: URINARY TRACT PAIN
     Dosage: 1 TABLET, 1X/DAY, ORAL
     Route: 048
     Dates: start: 20140914, end: 20140915
  2. CLONAZEPAM. [Concomitant]
     Active Substance: CLONAZEPAM
  3. AZO [Suspect]
     Active Substance: PHENAZOPYRIDINE HYDROCHLORIDE
     Indication: DYSURIA
     Dosage: 1 TABLET, 1X/DAY, ORAL
     Route: 048
     Dates: start: 20140914, end: 20140915
  4. AZO [Suspect]
     Active Substance: PHENAZOPYRIDINE HYDROCHLORIDE
     Indication: URINARY TRACT INFECTION
     Dosage: 1 TABLET, 1X/DAY, ORAL
     Route: 048
     Dates: start: 20140914, end: 20140915
  5. AZO [Suspect]
     Active Substance: PHENAZOPYRIDINE HYDROCHLORIDE
     Indication: MICTURITION URGENCY
     Dosage: 1 TABLET, 1X/DAY, ORAL
     Route: 048
     Dates: start: 20140914, end: 20140915

REACTIONS (13)
  - Electrocardiogram QT shortened [None]
  - Hypochromasia [None]
  - Electrocardiogram QT prolonged [None]
  - Poikilocytosis [None]
  - Gastric haemorrhage [None]
  - Anaemia [None]
  - Polychromasia [None]
  - Umbilical hernia [None]
  - Hiatus hernia [None]
  - Abdominal discomfort [None]
  - Chromaturia [None]
  - Gastric ulcer [None]
  - Diarrhoea [None]

NARRATIVE: CASE EVENT DATE: 201409
